FAERS Safety Report 24623210 (Version 1)
Quarter: 2024Q4

REPORT INFORMATION
  Report Type: Spontaneous
  Country: AT (occurrence: AT)
  Receive Date: 20241115
  Receipt Date: 20241115
  Transmission Date: 20250115
  Serious: Yes (Other)
  Sender: AMGEN
  Company Number: AT-AMGEN-AUTSP2024221926

PATIENT
  Age: 62 Year
  Sex: Male

DRUGS (8)
  1. VECTIBIX [Suspect]
     Active Substance: PANITUMUMAB
     Indication: Metastases to liver
     Dosage: UNK
     Route: 065
     Dates: start: 202312
  2. VECTIBIX [Suspect]
     Active Substance: PANITUMUMAB
     Dosage: UNK, REDUCED DOSE (50%)
     Route: 065
     Dates: start: 2024
  3. VECTIBIX [Suspect]
     Active Substance: PANITUMUMAB
     Dosage: UNK,INCREASED DOSE AT 75%
     Route: 065
     Dates: start: 2024
  4. VECTIBIX [Suspect]
     Active Substance: PANITUMUMAB
     Dosage: UNK,INCREASED DOSE AT 75%
     Route: 065
     Dates: start: 2024
  5. VECTIBIX [Suspect]
     Active Substance: PANITUMUMAB
     Dosage: UNK, 100% DOSE
     Route: 065
     Dates: start: 2024, end: 2024
  6. LEUCOVORIN [Suspect]
     Active Substance: LEUCOVORIN\LEUCOVORIN CALCIUM
     Indication: Metastases to liver
     Dosage: UNK
     Route: 065
     Dates: start: 202312
  7. FLUOROURACIL [Suspect]
     Active Substance: FLUOROURACIL
     Indication: Metastases to liver
     Dosage: UNK
     Route: 065
     Dates: start: 202312
  8. OXALIPLATIN [Suspect]
     Active Substance: OXALIPLATIN
     Indication: Metastases to liver
     Dosage: UNK
     Route: 065
     Dates: start: 202312

REACTIONS (7)
  - Thrombocytopenia [Unknown]
  - Folliculitis [Recovered/Resolved]
  - Xeroderma [Recovered/Resolved]
  - Anaemia [Unknown]
  - Dry skin [Recovered/Resolved]
  - Scratch [Recovered/Resolved]
  - Skin fissures [Recovered/Resolved]

NARRATIVE: CASE EVENT DATE: 20240101
